FAERS Safety Report 11839435 (Version 1)
Quarter: 2015Q4

REPORT INFORMATION
  Report Type: Spontaneous
  Country: US (occurrence: None)
  Receive Date: 20151215
  Receipt Date: 20151215
  Transmission Date: 20160305
  Serious: Yes (Other)
  Sender: FDA-Public Use
  Company Number: None

PATIENT
  Age: 61 Year
  Sex: Female

DRUGS (9)
  1. CEPHALEXIN. [Concomitant]
     Active Substance: CEPHALEXIN
  2. OXYCODONE [Concomitant]
     Active Substance: OXYCODONE
  3. LEVOFLOXAZIN [Concomitant]
  4. PROCHLORPERIDINE [Concomitant]
  5. FARYDAK [Suspect]
     Active Substance: PANOBINOSTAT
     Indication: PLASMA CELL MYELOMA
     Route: 048
  6. ESTRADIOL. [Concomitant]
     Active Substance: ESTRADIOL
  7. ZOLPIDEM [Concomitant]
     Active Substance: ZOLPIDEM\ZOLPIDEM TARTRATE
  8. DEXAMETHASONE. [Concomitant]
     Active Substance: DEXAMETHASONE
  9. DIAZEPAM. [Concomitant]
     Active Substance: DIAZEPAM

REACTIONS (2)
  - Tremor [None]
  - Adverse drug reaction [None]

NARRATIVE: CASE EVENT DATE: 201512
